FAERS Safety Report 6462436-7 (Version None)
Quarter: 2009Q4

REPORT INFORMATION
  Report Type: 
  Country: None (occurrence: None)
  Receive Date: 20091130
  Receipt Date: 20091130
  Transmission Date: 20100525
  Serious: Yes (Other)
  Sender: FDA-Public Use
  Company Number: US-PFIZER INC-2009259401

PATIENT
  Sex: Female
  Weight: 90.718 kg

DRUGS (5)
  1. LIPITOR [Suspect]
     Indication: BLOOD CHOLESTEROL INCREASED
     Dosage: 20 MG, 1X/DAY
     Route: 048
     Dates: end: 20080101
  2. ATENOLOL [Concomitant]
     Dosage: 25 MG, UNK
  3. ACETYLSALICYLIC ACID [Concomitant]
     Dosage: 81 MG, UNK
  4. LISINOPRIL [Concomitant]
     Dosage: 20 MG, UNK
  5. METFORMIN HYDROCHLORIDE [Concomitant]
     Dosage: 500 MG, UNK

REACTIONS (1)
  - POLYMYALGIA RHEUMATICA [None]
